FAERS Safety Report 9338232 (Version 1)
Quarter: 2013Q2

REPORT INFORMATION
  Report Type: Spontaneous
  Country: US (occurrence: None)
  Receive Date: 20130605
  Receipt Date: 20130605
  Transmission Date: 20140414
  Serious: Yes (Hospitalization, Disabling)
  Sender: FDA-Public Use
  Company Number: None

PATIENT
  Age: 40 Year
  Sex: Female
  Weight: 70.31 kg

DRUGS (1)
  1. LUPRON [Suspect]
     Indication: ENDOMETRIOSIS
     Dosage: 3.75 1/3 MONTHS 1MONTHLY
     Dates: start: 20080408, end: 200806

REACTIONS (18)
  - Osteoarthritis [None]
  - Somnolence [None]
  - Thirst [None]
  - Diplopia [None]
  - Nausea [None]
  - Flushing [None]
  - Agitation [None]
  - Vitamin D deficiency [None]
  - Dehydration [None]
  - Pollakiuria [None]
  - Vision blurred [None]
  - Dysgeusia [None]
  - Erythema [None]
  - Spinal pain [None]
  - Muscle swelling [None]
  - Muscle tightness [None]
  - Muscle rigidity [None]
  - Amnesia [None]
